FAERS Safety Report 9094535 (Version 1)
Quarter: 2013Q1

REPORT INFORMATION
  Report Type: Spontaneous
  Country: AR (occurrence: AR)
  Receive Date: 20130219
  Receipt Date: 20130219
  Transmission Date: 20140127
  Serious: Yes (Other)
  Sender: FDA-Public Use
  Company Number: PHHY2012AR127520

PATIENT
  Age: 69 Year
  Sex: Female

DRUGS (1)
  1. DIOVAN D [Suspect]
     Indication: HYPERTENSION
     Dosage: 1 DF (160 MG VALS AND UKN MG HCTZ, DAILY
     Route: 048

REACTIONS (1)
  - Pneumonia [Recovered/Resolved]
